FAERS Safety Report 8471519-1 (Version None)
Quarter: 2012Q2

REPORT INFORMATION
  Report Type: 
  Country: None (occurrence: None)
  Receive Date: 20120627
  Receipt Date: 20120618
  Transmission Date: 20120825
  Serious: Yes (Hospitalization)
  Sender: FDA-Public Use
  Company Number: GB-ROXANE LABORATORIES, INC.-2012-RO-01438RO

PATIENT
  Age: 26 Year
  Sex: Female
  Weight: 59 kg

DRUGS (4)
  1. FOLIC ACID [Suspect]
     Indication: RHEUMATOID ARTHRITIS
  2. METHOTREXATE [Suspect]
     Indication: RHEUMATOID ARTHRITIS
  3. HYDROXYCHLOROQUINE SULFATE [Suspect]
     Indication: RHEUMATOID ARTHRITIS
     Dosage: 400 MG
  4. GOLIMUMAB [Suspect]
     Indication: RHEUMATOID ARTHRITIS

REACTIONS (4)
  - PORTAL HYPERTENSION [None]
  - HYPOVOLAEMIC SHOCK [None]
  - OESOPHAGEAL VARICES HAEMORRHAGE [None]
  - HEPATIC CIRRHOSIS [None]
